FAERS Safety Report 7403311-0 (Version None)
Quarter: 2011Q2

REPORT INFORMATION
  Report Type: 
  Country: None (occurrence: None)
  Receive Date: 20110408
  Receipt Date: 20110315
  Transmission Date: 20111010
  Serious: No
  Sender: FDA-Public Use
  Company Number: US-B.I. PHARMACEUTICALS,INC./RIDGEFIELD-2011-BP-08269BP

PATIENT
  Sex: Male

DRUGS (3)
  1. ASPIRIN [Concomitant]
  2. CELEBREX [Concomitant]
  3. PRADAXA [Suspect]

REACTIONS (2)
  - PLATELET COUNT DECREASED [None]
  - BLOOD BLISTER [None]
